FAERS Safety Report 17508285 (Version 2)
Quarter: 2020Q2

REPORT INFORMATION
  Report Type: Spontaneous
  Country: CA (occurrence: CA)
  Receive Date: 20200306
  Receipt Date: 20200406
  Transmission Date: 20200713
  Serious: Yes (Other)
  Sender: FDA-Public Use
  Company Number: CA-BRISTOL-MYERS SQUIBB COMPANY-BMS-2020-017926

PATIENT
  Age: 66 Year
  Sex: Male

DRUGS (3)
  1. NIVOLUMAB [Suspect]
     Active Substance: NIVOLUMAB
     Indication: LUNG NEOPLASM MALIGNANT
     Route: 065
  2. NIVOLUMAB [Suspect]
     Active Substance: NIVOLUMAB
     Indication: BLADDER TRANSITIONAL CELL CARCINOMA
     Dosage: 240 MILLIGRAM, Q2WK
     Route: 042
     Dates: start: 20200213, end: 20200227
  3. TELMISARTAN. [Concomitant]
     Active Substance: TELMISARTAN
     Indication: PRODUCT USED FOR UNKNOWN INDICATION
     Dosage: 80 MILLIGRAM, QD
     Route: 048
     Dates: start: 20190714

REACTIONS (1)
  - Infusion related hypersensitivity reaction [Recovered/Resolved]

NARRATIVE: CASE EVENT DATE: 20200227
